FAERS Safety Report 10384543 (Version 1)
Quarter: 2014Q3

REPORT INFORMATION
  Report Type: Spontaneous
  Country: FR (occurrence: FR)
  Receive Date: 20140814
  Receipt Date: 20140814
  Transmission Date: 20150326
  Serious: Yes (Life-Threatening, Other)
  Sender: FDA-Public Use
  Company Number: FR-PERRIGO-14FR007685

PATIENT
  Age: 26 Year
  Sex: Female

DRUGS (2)
  1. BROMOCRIPTINE MESYLATE USP RX 2.5 MG 2P6 [Suspect]
     Active Substance: BROMOCRIPTINE MESYLATE
     Indication: LACTATION INHIBITION THERAPY
     Dosage: 2.5 MG, BID
     Route: 048
  2. TRIMEBUTINE [Concomitant]
     Active Substance: TRIMEBUTINE
     Indication: PRODUCT USED FOR UNKNOWN INDICATION
     Dosage: 100 MG, TID
     Route: 048

REACTIONS (6)
  - Myocardial infarction [Unknown]
  - Blindness [Unknown]
  - Muscular weakness [Unknown]
  - Arteriospasm coronary [Unknown]
  - Pericardial effusion [Unknown]
  - Brain injury [Unknown]
